FAERS Safety Report 14432358 (Version 4)
Quarter: 2019Q2

REPORT INFORMATION
  Report Type: Spontaneous
  Country: US (occurrence: US)
  Receive Date: 20180124
  Receipt Date: 20190605
  Transmission Date: 20190711
  Serious: No
  Sender: FDA-Public Use
  Company Number: US-PFIZER INC-2017545515

PATIENT
  Age: 43 Year
  Sex: Female
  Weight: 97.6 kg

DRUGS (5)
  1. DILANTIN [Suspect]
     Active Substance: PHENYTOIN
     Dosage: 300 MG, 2X/DAY(100 MG TAKE 3 CAPSULES TWICE A DAY)
     Dates: start: 20171116
  2. JANUMET [Concomitant]
     Active Substance: METFORMIN HYDROCHLORIDE\SITAGLIPTIN PHOSPHATE
     Indication: DIABETES MELLITUS
     Dosage: 1 DF, DAILY [SITAGLIPTIN-100MG]/[METFORMIN HYDROCHLORIDE-1000MG]
     Dates: start: 20170215
  3. DILANTIN [Suspect]
     Active Substance: PHENYTOIN
     Indication: SEIZURE
     Dosage: 300 MG, 2X/DAY (3 CAPSULE TWICE A DAY/100MG 3CAP X2 A DAY)
     Dates: start: 20170215
  4. CITALOPRAM [Concomitant]
     Active Substance: CITALOPRAM HYDROBROMIDE
     Dosage: 20 MG, 1X/DAY (ONE TABLET DAILY)
  5. DILANTIN [Suspect]
     Active Substance: PHENYTOIN
     Dosage: 300 MG, 2X/DAY (100 MG, ORALLY, (100 MG TAKE 3 CAPSULES TWICE A DAY)
     Route: 048

REACTIONS (1)
  - Product dispensing error [Unknown]
